FAERS Safety Report 5736436-6 (Version None)
Quarter: 2008Q2

REPORT INFORMATION
  Report Type: 
  Country: None (occurrence: None)
  Receive Date: 20080513
  Receipt Date: 20080509
  Transmission Date: 20081010
  Serious: No
  Sender: FDA-Public Use
  Company Number: B0519439A

PATIENT
  Sex: Male

DRUGS (4)
  1. MALARONE [Suspect]
     Indication: MALARIA PROPHYLAXIS
     Route: 048
  2. SURMONTIL [Suspect]
     Route: 048
  3. ZOLPIDEM TARTRATE [Suspect]
     Route: 048
  4. ALCOHOL [Suspect]

REACTIONS (3)
  - AMNESIA [None]
  - CONFUSIONAL STATE [None]
  - DIARRHOEA [None]
